FAERS Safety Report 4954440-2 (Version None)
Quarter: 2006Q1

REPORT INFORMATION
  Report Type: 
  Country: None (occurrence: None)
  Receive Date: 20060322
  Receipt Date: 20060307
  Transmission Date: 20060701
  Serious: Yes (Other)
  Sender: FDA-Public Use
  Company Number: BMRN-2006-004

PATIENT
  Age: 34 Year
  Sex: Male

DRUGS (1)
  1. ORAPRED(PREDNISOLONE SODIUM PHOSPHATE) SOLUTION (EXCEPT SYRUP), 20.2MG [Suspect]
     Indication: PEMPHIGUS
     Dosage: SEE IMAGE
     Route: 048
     Dates: start: 20010901

REACTIONS (6)
  - BACTERIAL INFECTION [None]
  - CATHETER RELATED INFECTION [None]
  - CATHETER SITE ERYTHEMA [None]
  - EMBOLISM VENOUS [None]
  - OEDEMA PERIPHERAL [None]
  - PELVIC VENOUS THROMBOSIS [None]
